FAERS Safety Report 17172305 (Version 3)
Quarter: 2021Q3

REPORT INFORMATION
  Report Type: Report from Study
  Country: US (occurrence: US)
  Receive Date: 20191218
  Receipt Date: 20210819
  Transmission Date: 20211014
  Serious: Yes (Hospitalization)
  Sender: FDA-Public Use
  Company Number: NVSC2019US072804

PATIENT
  Sex: Female
  Weight: 121.6 kg

DRUGS (4)
  1. TADALAFIL. [Suspect]
     Active Substance: TADALAFIL
     Indication: PULMONARY ARTERIAL HYPERTENSION
     Dosage: UNK
     Route: 065
  2. TREPROSTINIL. [Suspect]
     Active Substance: TREPROSTINIL
     Indication: PULMONARY ARTERIAL HYPERTENSION
     Dosage: 18 DF (18 NG/KG/MIN, CONTINUOUS)
     Route: 042
     Dates: start: 20191212
  3. SODIUM CHLORIDE. [Suspect]
     Active Substance: SODIUM CHLORIDE
     Indication: PRODUCT USED FOR UNKNOWN INDICATION
     Dosage: UNK
     Route: 065
  4. OPSUMIT [Concomitant]
     Active Substance: MACITENTAN
     Indication: PRODUCT USED FOR UNKNOWN INDICATION
     Dosage: UNK
     Route: 065

REACTIONS (9)
  - Lethargy [Unknown]
  - Vomiting [Unknown]
  - Product preparation error [Unknown]
  - Accidental exposure to product [Unknown]
  - Eye disorder [Unknown]
  - Diarrhoea [Unknown]
  - Headache [Unknown]
  - Oxygen saturation decreased [Unknown]
  - Drug intolerance [Unknown]
